FAERS Safety Report 25684994 (Version 2)
Quarter: 2025Q3

REPORT INFORMATION
  Report Type: Report from Study
  Country: BR (occurrence: BR)
  Receive Date: 20250815
  Receipt Date: 20250916
  Transmission Date: 20251020
  Serious: Yes (Life-Threatening, Hospitalization, Other)
  Sender: PFIZER
  Company Number: BR-PFIZER INC-PV202500027836

PATIENT
  Age: 73 Year
  Sex: Female
  Weight: 72 kg

DRUGS (9)
  1. INFLIXIMAB [Suspect]
     Active Substance: INFLIXIMAB
     Indication: Colitis ulcerative
     Route: 042
     Dates: start: 20221101
  2. INFLIXIMAB [Suspect]
     Active Substance: INFLIXIMAB
     Route: 042
     Dates: start: 20241203
  3. INFLIXIMAB [Suspect]
     Active Substance: INFLIXIMAB
     Route: 042
     Dates: start: 20250225
  4. INFLIXIMAB [Suspect]
     Active Substance: INFLIXIMAB
     Route: 042
     Dates: start: 202503
  5. INFLIXIMAB [Suspect]
     Active Substance: INFLIXIMAB
     Route: 042
     Dates: start: 20250804
  6. INFLIXIMAB [Suspect]
     Active Substance: INFLIXIMAB
  7. INFLIXIMAB [Suspect]
     Active Substance: INFLIXIMAB
     Dates: start: 20250609
  8. ATORVASTATIN [Concomitant]
     Active Substance: ATORVASTATIN
     Indication: Blood cholesterol increased
     Dosage: 1 DF, DAILY (1 PILL A DAY (START DATE: 5 MONTHS))
     Route: 048
  9. LOSARTAN [Concomitant]
     Active Substance: LOSARTAN
     Indication: Hypertension
     Dosage: 1 DF, DAILY (1 PILL A DAY (START DATE:2 YEARS))
     Route: 048

REACTIONS (12)
  - Blood sodium decreased [Recovered/Resolved]
  - Colitis ulcerative [Recovered/Resolved]
  - Haematochezia [Recovering/Resolving]
  - Blood sodium increased [Unknown]
  - Vomiting [Recovered/Resolved]
  - Anxiety [Unknown]
  - Decreased appetite [Recovering/Resolving]
  - Hypertension [Recovered/Resolved]
  - Pyrexia [Recovering/Resolving]
  - Therapy interrupted [Recovered/Resolved]
  - Product dose omission issue [Unknown]
  - Product availability issue [Recovered/Resolved]

NARRATIVE: CASE EVENT DATE: 20250217
